FAERS Safety Report 9541556 (Version 1)
Quarter: 2013Q2

REPORT INFORMATION
  Report Type: Spontaneous
  Country: US (occurrence: None)
  Receive Date: 20130524
  Receipt Date: 20130524
  Transmission Date: 20140414
  Serious: Yes (Other)
  Sender: FDA-Public Use
  Company Number: PHEH2012US025209

PATIENT
  Age: 47 Year
  Sex: Male

DRUGS (1)
  1. GILENYA [Suspect]
     Route: 048
     Dates: start: 20121220

REACTIONS (1)
  - Fatigue [None]
